FAERS Safety Report 6214052-X (Version None)
Quarter: 2009Q2

REPORT INFORMATION
  Report Type: 
  Country: None (occurrence: None)
  Receive Date: 20090604
  Receipt Date: 20090529
  Transmission Date: 20091009
  Serious: Yes (Other)
  Sender: FDA-Public Use
  Company Number: US-JNJFOC-20090600328

PATIENT

DRUGS (1)
  1. TOPIRAMATE [Suspect]
     Indication: MIGRAINE PROPHYLAXIS
     Route: 048

REACTIONS (3)
  - BLOOD PARATHYROID HORMONE INCREASED [None]
  - HYPERCALCAEMIA [None]
  - VITAMIN D DECREASED [None]
